FAERS Safety Report 13332799 (Version 4)
Quarter: 2017Q2

REPORT INFORMATION
  Report Type: Report from Study
  Country: CA (occurrence: CA)
  Receive Date: 20170313
  Receipt Date: 20170411
  Transmission Date: 20170830
  Serious: Yes (Hospitalization, Other)
  Sender: FDA-Public Use
  Company Number: CA-KADMON PHARMACEUTICALS, LLC-KAD-201703-00246

PATIENT
  Age: 71 Year
  Sex: Male
  Weight: 115 kg

DRUGS (7)
  1. HOLKIRA PAK [Suspect]
     Active Substance: DASABUVIR\OMBITASVIR\PARITAPREVIR\RITONAVIR
     Dosage: TWO CO-FORMULATED 12.5/75/50 MG TABLETS ONCE DAILY (QD) AND ONE 250 MG TABLET TWICE DAILY (BID)
     Route: 048
     Dates: start: 201703
  2. CITALOPRAM [Concomitant]
     Active Substance: CITALOPRAM HYDROBROMIDE
     Route: 048
  3. AMLODIPINE [Concomitant]
     Active Substance: AMLODIPINE BESYLATE
     Route: 048
  4. RIBAVIRIN. [Suspect]
     Active Substance: RIBAVIRIN
     Dosage: TABLET; TITRATION OF MODERIBA
     Route: 048
     Dates: start: 201703
  5. HOLKIRA PAK [Suspect]
     Active Substance: DASABUVIR\OMBITASVIR\PARITAPREVIR\RITONAVIR
     Indication: CHRONIC HEPATITIS C
     Dosage: TABLET
     Route: 048
     Dates: start: 20170131, end: 20170228
  6. AFLIBERCEPT [Concomitant]
     Active Substance: AFLIBERCEPT
  7. RIBAVIRIN. [Suspect]
     Active Substance: RIBAVIRIN
     Indication: CHRONIC HEPATITIS C
     Dosage: TABLET
     Route: 048
     Dates: start: 20170131, end: 20170228

REACTIONS (12)
  - Cardiac fibrillation [Unknown]
  - Blood potassium decreased [Unknown]
  - Chest discomfort [Recovered/Resolved]
  - Respiratory alkalosis [Unknown]
  - Blood magnesium decreased [Unknown]
  - Tremor [Recovered/Resolved]
  - Withdrawal syndrome [Unknown]
  - Ventricular tachycardia [Unknown]
  - Abdominal pain [Unknown]
  - Generalised oedema [Recovered/Resolved]
  - Diarrhoea [Unknown]
  - Dehydration [Unknown]

NARRATIVE: CASE EVENT DATE: 20170228
